FAERS Safety Report 9393991 (Version 3)
Quarter: 2013Q3

REPORT INFORMATION
  Report Type: Spontaneous
  Country: US (occurrence: US)
  Receive Date: 20130710
  Receipt Date: 20130823
  Transmission Date: 20140515
  Serious: Yes (Other)
  Sender: FDA-Public Use
  Company Number: CHPA2013US010826

PATIENT
  Age: 55 Year
  Sex: Female

DRUGS (7)
  1. EXCEDRIN EXTRA STRENGTH [Suspect]
     Indication: MIGRAINE
     Dosage: 2 DF, QID
     Route: 048
     Dates: start: 2005, end: 201010
  2. EXCEDRIN EXTRA STRENGTH [Suspect]
     Indication: HEADACHE
  3. EXCEDRIN EXTRA STRENGTH [Suspect]
     Indication: ARTHRALGIA
  4. EXCEDRIN EXTRA STRENGTH [Suspect]
     Indication: NECK PAIN
  5. GAS-X EXTSTR CHEWABLE TABS CHERRY CREME [Suspect]
     Dosage: UNK, UNK
  6. PROTOZOAN [Suspect]
     Dosage: UNK, UNK
  7. TYLENOL [Concomitant]
     Dosage: UNK, UNK

REACTIONS (3)
  - Atrial fibrillation [Not Recovered/Not Resolved]
  - Mycobacterium tuberculosis complex test positive [Recovered/Resolved]
  - Blood pressure increased [Unknown]
